FAERS Safety Report 5990866-6 (Version None)
Quarter: 2008Q4

REPORT INFORMATION
  Report Type: 
  Country: None (occurrence: None)
  Receive Date: 20081211
  Receipt Date: 20081202
  Transmission Date: 20090506
  Serious: Yes (Death, Other)
  Sender: FDA-Public Use
  Company Number: US-PFIZER INC-2008150695

PATIENT
  Age: 33 Year
  Sex: Female

DRUGS (1)
  1. GEODON [Suspect]
     Dates: start: 20081001, end: 20081101

REACTIONS (1)
  - CORONARY ARTERY OCCLUSION [None]
